FAERS Safety Report 16925878 (Version 1)
Quarter: 2019Q4

REPORT INFORMATION
  Report Type: Spontaneous
  Country: US (occurrence: US)
  Receive Date: 20191016
  Receipt Date: 20191016
  Transmission Date: 20200122
  Serious: Yes (Other)
  Sender: FDA-Public Use
  Company Number: US-AKORN PHARMACEUTICALS-2019AKN02151

PATIENT
  Sex: Female
  Weight: 70.3 kg

DRUGS (1)
  1. MYORISAN [Suspect]
     Active Substance: ISOTRETINOIN
     Indication: ACNE CYSTIC
     Dosage: 20 MG, 2X/DAY
     Route: 048
     Dates: start: 201902, end: 201905

REACTIONS (8)
  - Stress [Recovered/Resolved]
  - Depressed mood [Recovered/Resolved]
  - Somnolence [Recovered/Resolved]
  - Mood altered [Recovered/Resolved]
  - Abnormal behaviour [Recovered/Resolved]
  - Decreased interest [Recovered/Resolved]
  - Emotional disorder [Recovered/Resolved]
  - Crying [Recovered/Resolved]

NARRATIVE: CASE EVENT DATE: 2019
